FAERS Safety Report 4546349-3 (Version None)
Quarter: 2005Q1

REPORT INFORMATION
  Report Type: 
  Country: None (occurrence: None)
  Receive Date: 20050103
  Receipt Date: 20041220
  Transmission Date: 20050727
  Serious: Yes (Hospitalization)
  Sender: FDA-Public Use
  Company Number: 2004057550

PATIENT
  Age: 59 Year
  Sex: Male

DRUGS (2)
  1. SORTIS (ATORVASTATIN) [Suspect]
     Indication: ILL-DEFINED DISORDER
     Dosage: 10 MG (10 MG, 1 IN 1 D) ORAL
     Route: 048
     Dates: start: 20040524, end: 20040717
  2. ALL OTHER THERAPEUTIC PRODUCTS [Concomitant]

REACTIONS (6)
  - ASTHENIA [None]
  - C-REACTIVE PROTEIN INCREASED [None]
  - MUSCLE ATROPHY [None]
  - MYOSITIS [None]
  - PARANEOPLASTIC SYNDROME [None]
  - PARESIS [None]
